FAERS Safety Report 12115941 (Version 1)
Quarter: 2016Q1

REPORT INFORMATION
  Report Type: Spontaneous
  Country: US (occurrence: US)
  Receive Date: 20160225
  Receipt Date: 20160225
  Transmission Date: 20160526
  Serious: No
  Sender: FDA-Public Use
  Company Number: US-LANTHEUS-LMI-2015-00467

PATIENT
  Age: 63 Year
  Sex: Female
  Weight: 90 kg

DRUGS (9)
  1. LISINOPRIL. [Concomitant]
     Active Substance: LISINOPRIL
     Indication: PRODUCT USED FOR UNKNOWN INDICATION
  2. DEFINITY [Suspect]
     Active Substance: PERFLUTREN
     Indication: ECHOCARDIOGRAM
     Dosage: 1.3 ML DEFINITY DILUTED IN 8.7 ML NORMAL SALINE
     Route: 040
     Dates: start: 20150825, end: 20150825
  3. ASPIRIN. [Concomitant]
     Active Substance: ASPIRIN
     Indication: PRODUCT USED FOR UNKNOWN INDICATION
  4. DEFINITY [Suspect]
     Active Substance: PERFLUTREN
     Dosage: 1.3 ML DEFINITY DILUTED IN 8.7 ML NORMAL SALINE
     Route: 040
     Dates: start: 20150825, end: 20150825
  5. ATORVASTATIN [Concomitant]
     Active Substance: ATORVASTATIN
     Indication: PRODUCT USED FOR UNKNOWN INDICATION
  6. PANTOPRAZOLE [Concomitant]
     Active Substance: PANTOPRAZOLE SODIUM
     Indication: PRODUCT USED FOR UNKNOWN INDICATION
  7. HEPARIN [Concomitant]
     Active Substance: HEPARIN SODIUM
     Indication: PRODUCT USED FOR UNKNOWN INDICATION
  8. DEFINITY [Suspect]
     Active Substance: PERFLUTREN
     Dosage: 1.3 ML DEFINITY DILUTED IN 8.7 ML NORMAL SALINE
     Route: 040
     Dates: start: 20150825, end: 20150825
  9. DEFINITY [Suspect]
     Active Substance: PERFLUTREN
     Dosage: 1.3 ML DEFINITY DILUTED IN 8.7 ML NORMAL SALINE
     Route: 040
     Dates: start: 20150825, end: 20150825

REACTIONS (5)
  - Chest pain [Recovered/Resolved]
  - Facial pain [Recovered/Resolved]
  - Headache [Recovered/Resolved]
  - Flank pain [Recovered/Resolved]
  - Pain in extremity [Recovered/Resolved]

NARRATIVE: CASE EVENT DATE: 20150825
